FAERS Safety Report 4639291-0 (Version None)
Quarter: 2005Q2

REPORT INFORMATION
  Report Type: 
  Country: None (occurrence: None)
  Receive Date: 20050418
  Receipt Date: 20050404
  Transmission Date: 20051028
  Serious: Yes (Hospitalization)
  Sender: FDA-Public Use
  Company Number: HQWYE689005APR05

PATIENT
  Age: 45 Year
  Sex: Female

DRUGS (6)
  1. EFFEXOR [Suspect]
     Dates: start: 20040201
  2. TRANSDERM SCOP [Suspect]
     Indication: VERTIGO
     Dosage: SEE IMAGE
     Route: 062
     Dates: start: 20040301, end: 20040301
  3. TRANSDERM SCOP [Suspect]
     Indication: VERTIGO
     Dosage: SEE IMAGE
     Route: 062
     Dates: start: 20041001, end: 20041001
  4. VICODIN [Concomitant]
  5. CLOMIPHENE (CLOMIFENE) [Concomitant]
  6. TEGRETOL [Concomitant]

REACTIONS (15)
  - BRAIN DAMAGE [None]
  - DIZZINESS [None]
  - DRUG HYPERSENSITIVITY [None]
  - DRUG INTERACTION [None]
  - DRUG TOXICITY [None]
  - FEELING ABNORMAL [None]
  - HEADACHE [None]
  - MEDICATION ERROR [None]
  - MENTAL DISORDER [None]
  - METABOLIC DISORDER [None]
  - NERVOUS SYSTEM DISORDER [None]
  - NEURALGIA [None]
  - TRISMUS [None]
  - VISION BLURRED [None]
  - VOMITING [None]
